FAERS Safety Report 18382062 (Version 5)
Quarter: 2021Q1

REPORT INFORMATION
  Report Type: Report from Study
  Country: US (occurrence: US)
  Receive Date: 20201014
  Receipt Date: 20210303
  Transmission Date: 20210419
  Serious: Yes (Hospitalization, Other)
  Sender: FDA-Public Use
  Company Number: US-GLAXOSMITHKLINE-US2020AMR168073

PATIENT
  Age: 75 Year
  Sex: Female

DRUGS (8)
  1. NIRAPARIB [Suspect]
     Active Substance: NIRAPARIB
     Dosage: 100 MG, QD
     Dates: start: 20210216
  2. NIRAPARIB [Suspect]
     Active Substance: NIRAPARIB
     Dosage: 100 MG, QD
     Dates: start: 20200808, end: 20200923
  3. NIRAPARIB [Suspect]
     Active Substance: NIRAPARIB
     Dosage: 100 MG, QD
     Dates: start: 20201125
  4. NIRAPARIB [Suspect]
     Active Substance: NIRAPARIB
     Dosage: 100 MG, QD
     Dates: end: 20210211
  5. NIRAPARIB [Suspect]
     Active Substance: NIRAPARIB
     Dosage: 100 MG
     Dates: start: 202008
  6. NIRAPARIB [Suspect]
     Active Substance: NIRAPARIB
     Dosage: 200 MG, QD
     Dates: start: 202003
  7. NIRAPARIB [Suspect]
     Active Substance: NIRAPARIB
     Dosage: 100 MG, QD
  8. NIRAPARIB [Suspect]
     Active Substance: NIRAPARIB
     Indication: OVARIAN CANCER
     Dosage: 200 MG, QD
     Dates: start: 202003

REACTIONS (12)
  - BRCA2 gene mutation [Unknown]
  - Haemoglobin decreased [Not Recovered/Not Resolved]
  - Thrombocytopenia [Unknown]
  - Fall [Unknown]
  - Hernia [Unknown]
  - Pancytopenia [Unknown]
  - Off label use [Unknown]
  - Intestinal obstruction [Unknown]
  - Platelet count decreased [Unknown]
  - Incisional hernia [Unknown]
  - White blood cell count decreased [Unknown]
  - Rib fracture [Unknown]

NARRATIVE: CASE EVENT DATE: 202102
